FAERS Safety Report 14276737 (Version 1)
Quarter: 2017Q4

REPORT INFORMATION
  Report Type: Spontaneous
  Country: US (occurrence: US)
  Receive Date: 20171211
  Receipt Date: 20171211
  Transmission Date: 20180321
  Serious: Yes (Other)
  Sender: FDA-Public Use
  Company Number: US-OTSUKA-2016_003979

PATIENT
  Sex: Female
  Weight: 89.34 kg

DRUGS (3)
  1. ABILIFY [Suspect]
     Active Substance: ARIPIPRAZOLE
     Indication: BIPOLAR DISORDER
     Dosage: UNK, QD
     Route: 048
     Dates: start: 200605
  2. REXULTI [Suspect]
     Active Substance: BREXPIPRAZOLE
     Dosage: 2 UNK, UNK
  3. REXULTI [Suspect]
     Active Substance: BREXPIPRAZOLE
     Indication: DOPAMINE DYSREGULATION SYNDROME
     Dosage: 1 MG, QD
     Route: 048

REACTIONS (5)
  - Weight increased [Unknown]
  - Eating disorder [Not Recovered/Not Resolved]
  - Drug ineffective [Unknown]
  - Schizophrenia [Unknown]
  - Treatment noncompliance [Unknown]
